FAERS Safety Report 21689240 (Version 1)
Quarter: 2022Q4

REPORT INFORMATION
  Report Type: Spontaneous
  Country: US (occurrence: None)
  Receive Date: 20221206
  Receipt Date: 20221206
  Transmission Date: 20230113
  Serious: Yes (Hospitalization)
  Sender: FDA-Public Use
  Company Number: None

PATIENT
  Age: 41 Year
  Sex: Male
  Weight: 76.11 kg

DRUGS (12)
  1. CLOZAPINE [Suspect]
     Active Substance: CLOZAPINE
     Indication: Aggression
     Dosage: FREQUENCY : DAILY;?
     Route: 048
     Dates: start: 20100430, end: 20220812
  2. CLOZAPINE [Suspect]
     Active Substance: CLOZAPINE
     Indication: Autism spectrum disorder
  3. BISACODYL [Concomitant]
     Active Substance: BISACODYL
     Dates: start: 20160711
  4. CLOBAZAM [Concomitant]
     Active Substance: CLOBAZAM
     Dates: start: 20181219
  5. LACOSAMIDE [Concomitant]
     Active Substance: LACOSAMIDE
     Dates: start: 20160711
  6. LORATADINE [Concomitant]
     Active Substance: LORATADINE
     Dates: start: 20160711
  7. PANTOPRAZOLE [Concomitant]
     Active Substance: PANTOPRAZOLE
     Dates: start: 20210507
  8. MIRALAX [Concomitant]
     Active Substance: POLYETHYLENE GLYCOL 3350
     Dates: start: 20220114
  9. PYRIDOXINE [Concomitant]
     Active Substance: PYRIDOXINE
     Dates: start: 20180627
  10. VITAMINS [Concomitant]
     Active Substance: VITAMINS
     Dates: start: 20160711
  11. CLONIDINE [Concomitant]
     Active Substance: CLONIDINE
     Dates: start: 20220418, end: 20220818
  12. LEVETIRACETAM [Concomitant]
     Active Substance: LEVETIRACETAM
     Dates: start: 20180830, end: 20221007

REACTIONS (5)
  - Small intestinal obstruction [None]
  - Gastroenteritis viral [None]
  - Ileus paralytic [None]
  - Diarrhoea [None]
  - Drug level [None]

NARRATIVE: CASE EVENT DATE: 20220809
